FAERS Safety Report 5045447-8 (Version None)
Quarter: 2006Q3

REPORT INFORMATION
  Report Type: 
  Country: None (occurrence: None)
  Receive Date: 20060707
  Receipt Date: 20060628
  Transmission Date: 20061208
  Serious: Yes (Hospitalization, Disabling, Other)
  Sender: FDA-Public Use
  Company Number: CA-JNJFOC-20060304082

PATIENT
  Sex: Male

DRUGS (12)
  1. LEVAQUIN [Suspect]
     Indication: PNEUMONIA
     Route: 048
     Dates: start: 20060215, end: 20060219
  2. HEPARIN [Concomitant]
     Indication: ANTICOAGULANT THERAPY
  3. OMEPRAZOLE [Concomitant]
     Indication: GASTROOESOPHAGEAL REFLUX DISEASE
     Route: 048
  4. ACETAMINOPHEN [Concomitant]
     Indication: MUSCULOSKELETAL PAIN
  5. NITROGLYCERIN [Concomitant]
     Indication: ANGINA PECTORIS
  6. LORAZEPAM [Concomitant]
  7. SALINE [Concomitant]
  8. VITAMIN E [Concomitant]
  9. ZINC [Concomitant]
  10. LUTEIN [Concomitant]
  11. SELENIUM SULFIDE [Concomitant]
  12. VITAMINS B AND C AND B6 [Concomitant]

REACTIONS (5)
  - BLINDNESS [None]
  - DRUG ADMINISTRATION ERROR [None]
  - MACULAR DEGENERATION [None]
  - OVERDOSE [None]
  - VISUAL FIELD DEFECT [None]
